FAERS Safety Report 19551642 (Version 2)
Quarter: 2021Q3

REPORT INFORMATION
  Report Type: Report from Study
  Country: None (occurrence: US)
  Receive Date: 20210715
  Receipt Date: 20210719
  Transmission Date: 20211014
  Serious: Yes (Hospitalization)
  Sender: FDA-Public Use
  Company Number: US-ABBVIE-21K-163-3988144-00

PATIENT
  Age: 62 Year
  Sex: Female

DRUGS (1)
  1. SKYRIZI [Suspect]
     Active Substance: RISANKIZUMAB-RZAA
     Indication: PSORIASIS
     Route: 058

REACTIONS (2)
  - Skin infection [Recovered/Resolved]
  - Staphylococcal skin infection [Recovered/Resolved]

NARRATIVE: CASE EVENT DATE: 202012
